FAERS Safety Report 22046396 (Version 3)
Quarter: 2023Q1

REPORT INFORMATION
  Report Type: Spontaneous
  Country: US (occurrence: US)
  Receive Date: 20230228
  Receipt Date: 20230323
  Transmission Date: 20230418
  Serious: Yes (Other)
  Sender: FDA-Public Use
  Company Number: US-009507513-2302USA007261

PATIENT
  Age: 36 Year
  Sex: Female
  Weight: 80.272 kg

DRUGS (6)
  1. KEYTRUDA [Suspect]
     Active Substance: PEMBROLIZUMAB
     Indication: Malignant melanoma
     Dosage: 200 MG, EVERY 21 DAYS
     Route: 042
     Dates: start: 20221215
  2. KEYTRUDA [Suspect]
     Active Substance: PEMBROLIZUMAB
     Dosage: 200 MG, EVERY 21 DAYS
     Route: 042
     Dates: start: 20230105, end: 20230105
  3. KEYTRUDA [Suspect]
     Active Substance: PEMBROLIZUMAB
     Dosage: 200 MG, EVERY 21 DAYS; 3RD TREATMENT
     Route: 042
     Dates: start: 20230126, end: 20230126
  4. LORATADINE [Concomitant]
     Active Substance: LORATADINE
     Dosage: 10 MILLIGRAM, QD
     Route: 048
     Dates: start: 20221202
  5. MTV [Concomitant]
     Dosage: UNK, QD
     Route: 048
     Dates: start: 20221202
  6. OMEPRAZOLE [Concomitant]
     Active Substance: OMEPRAZOLE
     Dosage: 20 MILLIGRAM, QD
     Route: 048
     Dates: start: 20221202

REACTIONS (4)
  - Blood thyroid stimulating hormone decreased [Recovering/Resolving]
  - Hyperthyroidism [Unknown]
  - Tachycardia [Unknown]
  - Goitre [Unknown]

NARRATIVE: CASE EVENT DATE: 20230126
